FAERS Safety Report 9452231 (Version 1)
Quarter: 2013Q3

REPORT INFORMATION
  Report Type: Other
  Country: US (occurrence: US)
  Receive Date: 20130812
  Receipt Date: 20130812
  Transmission Date: 20140515
  Serious: Yes (Other)
  Sender: FDA-Public Use
  Company Number: US-BRISTOL-MYERS SQUIBB COMPANY-19162445

PATIENT
  Age: 50 Year
  Sex: Male

DRUGS (3)
  1. MITOMYCIN-C [Suspect]
     Indication: HEPATOCELLULAR CARCINOMA
     Dosage: INJ
     Route: 013
  2. CISPLATIN [Suspect]
  3. ADRIACIN [Suspect]
     Indication: HEPATOCELLULAR CARCINOMA
     Dosage: INJ
     Route: 013

REACTIONS (1)
  - Hepatic atrophy [Recovered/Resolved]
